FAERS Safety Report 6996511-5 (Version None)
Quarter: 2010Q3

REPORT INFORMATION
  Report Type: 
  Country: None (occurrence: None)
  Receive Date: 20100918
  Receipt Date: 20090421
  Transmission Date: 20110219
  Serious: No
  Sender: FDA-Public Use
  Company Number: US-WYE-H09047309

PATIENT
  Age: 23 Year
  Sex: Female

DRUGS (1)
  1. EFFEXOR XR [Suspect]
     Indication: DEPRESSION
     Dosage: 150 MG A.M. AND 75 MG P.M. DAILY
     Route: 048
     Dates: start: 20070101

REACTIONS (3)
  - CRYING [None]
  - DRUG WITHDRAWAL SYNDROME [None]
  - UNEVALUABLE EVENT [None]
